FAERS Safety Report 9745793 (Version 3)
Quarter: 2014Q1

REPORT INFORMATION
  Report Type: Spontaneous
  Country: JP (occurrence: JP)
  Receive Date: 20131211
  Receipt Date: 20140212
  Transmission Date: 20141002
  Serious: Yes (Life-Threatening)
  Sender: FDA-Public Use
  Company Number: JP-SA-2013SA125448

PATIENT
  Age: 64 Year
  Sex: Male
  Weight: 52 kg

DRUGS (23)
  1. ELPLAT [Suspect]
     Indication: RECTAL CANCER
     Dosage: INJECTION
     Route: 041
     Dates: start: 20130909, end: 20130909
  2. ELPLAT [Suspect]
     Indication: RECTAL CANCER
     Dosage: INJECTION
     Route: 041
     Dates: start: 20130925, end: 20130925
  3. ELPLAT [Suspect]
     Indication: RECTAL CANCER
     Dosage: INJECTION
     Route: 041
     Dates: start: 20131009, end: 20131009
  4. ELPLAT [Suspect]
     Indication: RECTAL CANCER
     Dosage: INJECTION
     Route: 041
     Dates: start: 20131023, end: 20131023
  5. ELPLAT [Suspect]
     Indication: RECTAL CANCER
     Dosage: INJECTION
     Route: 041
     Dates: start: 20131120, end: 20131120
  6. 5-FU [Suspect]
     Indication: RECTAL CANCER
     Route: 040
     Dates: start: 20130909, end: 20130909
  7. 5-FU [Suspect]
     Indication: RECTAL CANCER
     Route: 041
     Dates: start: 20130909, end: 20130909
  8. 5-FU [Suspect]
     Indication: RECTAL CANCER
     Route: 040
     Dates: start: 20130925, end: 20130925
  9. 5-FU [Suspect]
     Indication: RECTAL CANCER
     Route: 041
     Dates: start: 20130925, end: 20130925
  10. 5-FU [Suspect]
     Indication: RECTAL CANCER
     Route: 040
     Dates: start: 20131009, end: 20131009
  11. 5-FU [Suspect]
     Indication: RECTAL CANCER
     Route: 041
     Dates: start: 20131009, end: 20131009
  12. 5-FU [Suspect]
     Indication: RECTAL CANCER
     Route: 040
     Dates: start: 20131023, end: 20131023
  13. 5-FU [Suspect]
     Indication: RECTAL CANCER
     Route: 041
     Dates: start: 20131023, end: 20131023
  14. 5-FU [Suspect]
     Indication: RECTAL CANCER
     Route: 041
     Dates: start: 20131120, end: 20131120
  15. 5-FU [Suspect]
     Indication: RECTAL CANCER
     Route: 041
     Dates: start: 20131120, end: 20131120
  16. ISOVORIN [Concomitant]
     Dates: start: 20130909, end: 20131120
  17. AVASTIN [Concomitant]
     Dates: start: 20130909, end: 20131120
  18. ALOXI [Concomitant]
     Dates: start: 20130909, end: 20131120
  19. DECADRON [Concomitant]
     Dates: start: 20130909, end: 20131120
  20. EMEND [Concomitant]
     Dates: start: 20130909, end: 20131120
  21. AMINOLEBAN [Concomitant]
     Dates: start: 20131122, end: 20131123
  22. ATARAX-P [Concomitant]
     Dates: start: 20131122, end: 20131122
  23. LACTEC [Concomitant]
     Dates: start: 20131122, end: 20131122

REACTIONS (1)
  - Hyperammonaemia [Recovered/Resolved]
